FAERS Safety Report 9782797 (Version 1)
Quarter: 2013Q4

REPORT INFORMATION
  Report Type: Spontaneous
  Country: US (occurrence: US)
  Receive Date: 20131226
  Receipt Date: 20131226
  Transmission Date: 20140711
  Serious: No
  Sender: FDA-Public Use
  Company Number: US-ABBVIE-13P-163-1064386-00

PATIENT
  Age: 69 Year
  Sex: Male
  Weight: 85.35 kg

DRUGS (1)
  1. LUPRON DEPOT [Suspect]
     Indication: PROSTATE CANCER
     Dates: start: 201209, end: 201303

REACTIONS (1)
  - Hot flush [Not Recovered/Not Resolved]
